FAERS Safety Report 7423439-9 (Version None)
Quarter: 2011Q2

REPORT INFORMATION
  Report Type: 
  Country: None (occurrence: None)
  Receive Date: 20110419
  Receipt Date: 20110408
  Transmission Date: 20111010
  Serious: Yes (Hospitalization)
  Sender: FDA-Public Use
  Company Number: US-ACTELION-A-US2011-46167

PATIENT

DRUGS (1)
  1. TRACLEER [Suspect]
     Indication: PULMONARY ARTERIAL HYPERTENSION
     Dosage: UNK
     Route: 048
     Dates: start: 20081114

REACTIONS (5)
  - FATIGUE [None]
  - DYSPNOEA [None]
  - CHEST PAIN [None]
  - SWELLING FACE [None]
  - MUSCULAR WEAKNESS [None]
